FAERS Safety Report 17409512 (Version 1)
Quarter: 2020Q1

REPORT INFORMATION
  Report Type: Spontaneous
  Country: FR (occurrence: FR)
  Receive Date: 20200212
  Receipt Date: 20200212
  Transmission Date: 20200409
  Serious: Yes (Hospitalization)
  Sender: FDA-Public Use
  Company Number: FR-PFIZER INC-2020057765

PATIENT
  Age: 62 Year
  Sex: Male
  Weight: 62 kg

DRUGS (3)
  1. RHINADVIL [Suspect]
     Active Substance: IBUPROFEN\PSEUDOEPHEDRINE HYDROCHLORIDE
     Indication: NASOPHARYNGITIS
     Dosage: UNK
     Route: 048
     Dates: start: 20191215, end: 20191219
  2. LUMIRELAX [METHOCARBAMOL;METHYL NICOTINATE] [Suspect]
     Active Substance: METHOCARBAMOL\METHYL NICOTINATE
     Indication: NECK PAIN
     Dosage: UNKNOWN
     Route: 048
     Dates: start: 20191219, end: 20191224
  3. KETOPROFENE ARROW [Suspect]
     Active Substance: KETOPROFEN
     Indication: NECK PAIN
     Dosage: UNKNOWN
     Route: 048
     Dates: start: 20191219, end: 20191224

REACTIONS (1)
  - Meningitis aseptic [Recovered/Resolved]

NARRATIVE: CASE EVENT DATE: 20191219
